FAERS Safety Report 4445554-4 (Version None)
Quarter: 2004Q3

REPORT INFORMATION
  Report Type: 
  Country: None (occurrence: None)
  Receive Date: 20040804
  Receipt Date: 20030930
  Transmission Date: 20050211
  Serious: No
  Sender: FDA-Public Use
  Company Number: 202628

PATIENT
  Age: 30 Year
  Sex: Female
  Weight: 61 kg

DRUGS (2)
  1. HERCEPTIN [Suspect]
     Indication: BREAST CANCER METASTATIC
     Dosage: 122 MG, 1/WEEK, INTRAVENOUS
     Route: 042
     Dates: start: 20021008, end: 20030811
  2. PROCHLORPERAZINE [Concomitant]

REACTIONS (2)
  - THROAT IRRITATION [None]
  - URTICARIA [None]
